FAERS Safety Report 25070324 (Version 1)
Quarter: 2025Q1

REPORT INFORMATION
  Report Type: Spontaneous
  Country: US (occurrence: None)
  Receive Date: 20250312
  Receipt Date: 20250312
  Transmission Date: 20250409
  Serious: No
  Sender: FDA-CTU
  Company Number: None

PATIENT
  Age: 56 Year
  Sex: Female
  Weight: 98.55 kg

DRUGS (5)
  1. ACTEMRA [Suspect]
     Active Substance: TOCILIZUMAB
     Indication: Rheumatoid arthritis
     Dosage: OTHER FREQUENCY : WEEKLY;?
     Route: 058
     Dates: start: 20240808
  2. LEVOTHYROXINE [Concomitant]
     Active Substance: LEVOTHYROXINE
  3. OMEPRAZOLE [Concomitant]
     Active Substance: OMEPRAZOLE
  4. METOPROLOL [Concomitant]
     Active Substance: METOPROLOL
  5. IBUPROFEN [Concomitant]
     Active Substance: IBUPROFEN

REACTIONS (2)
  - Swelling face [None]
  - Gingival swelling [None]

NARRATIVE: CASE EVENT DATE: 20250312
